FAERS Safety Report 13795603 (Version 2)
Quarter: 2017Q3

REPORT INFORMATION
  Report Type: Other
  Country: FI (occurrence: FI)
  Receive Date: 20170726
  Receipt Date: 20170804
  Transmission Date: 20171127
  Serious: Yes (Life-Threatening)
  Sender: FDA-Public Use
  Company Number: FI-CELLTRION INC.-2017FI009620

PATIENT

DRUGS (4)
  1. AERIUS                             /01009701/ [Concomitant]
     Active Substance: EBASTINE
     Dosage: 2.5 MG, UNK
     Route: 048
     Dates: start: 2011
  2. INFLECTRA [Suspect]
     Active Substance: INFLIXIMAB-DYYB
     Dosage: 500 MG, EVERY 8 WEEKS
     Route: 042
     Dates: start: 20170630, end: 20170630
  3. INFLECTRA [Suspect]
     Active Substance: INFLIXIMAB-DYYB
     Indication: COLITIS ULCERATIVE
     Dosage: 500 MG, EVERY 8 WEEKS
     Route: 042
     Dates: start: 20150807
  4. INFLECTRA [Suspect]
     Active Substance: INFLIXIMAB-DYYB
     Dosage: 500 MG, EVERY 8 WEEKS
     Route: 042
     Dates: start: 20170630, end: 20170630

REACTIONS (5)
  - Anaphylactic reaction [Recovered/Resolved]
  - Dizziness [Recovered/Resolved]
  - Pruritus [Unknown]
  - Malaise [Recovered/Resolved]
  - Hypoaesthesia [Recovered/Resolved]

NARRATIVE: CASE EVENT DATE: 201701
